FAERS Safety Report 17823759 (Version 5)
Quarter: 2021Q4

REPORT INFORMATION
  Report Type: Spontaneous
  Country: US (occurrence: US)
  Receive Date: 20200526
  Receipt Date: 20211122
  Transmission Date: 20220303
  Serious: Yes (Other)
  Sender: FDA-Public Use
  Company Number: US-PFIZER INC-2020205282

PATIENT
  Age: 68 Year
  Sex: Female
  Weight: 79.38 kg

DRUGS (4)
  1. IBRANCE [Suspect]
     Active Substance: PALBOCICLIB
     Indication: Breast cancer metastatic
     Dosage: 100 MG
     Route: 048
  2. IBRANCE [Suspect]
     Active Substance: PALBOCICLIB
     Dosage: 75MG CYCLIC (THREE TIMES A WEEK FOR THREE WEEKS AND THEN OFF FOR ONE WEEK)
     Route: 048
  3. CARBAMAZEPINE [Suspect]
     Active Substance: CARBAMAZEPINE
     Indication: Pain
     Dosage: 150 MG, 2X/DAY
     Route: 048
     Dates: start: 20210525, end: 202106
  4. LETROZOLE [Concomitant]
     Active Substance: LETROZOLE
     Indication: Breast cancer metastatic
     Dosage: 2.5 MG, 1X/DAY (ONCE A DAY BY MOUTH)
     Route: 048
     Dates: start: 201809

REACTIONS (6)
  - Thrombosis [Unknown]
  - Neutropenia [Unknown]
  - Peripheral swelling [Unknown]
  - Blood chloride decreased [Recovering/Resolving]
  - Blood sodium decreased [Recovering/Resolving]
  - Off label use [Unknown]

NARRATIVE: CASE EVENT DATE: 20180909
